FAERS Safety Report 10798615 (Version 1)
Quarter: 2015Q1

REPORT INFORMATION
  Report Type: Spontaneous
  Country: FR (occurrence: FR)
  Receive Date: 20150216
  Receipt Date: 20150216
  Transmission Date: 20150721
  Serious: Yes (Other)
  Sender: FDA-Public Use
  Company Number: FR-GLAXOSMITHKLINE-FR2015GSK018213

PATIENT
  Age: 38 Year
  Sex: Female

DRUGS (14)
  1. VENTOLINE [Suspect]
     Active Substance: ALBUTEROL
     Indication: BRONCHIAL DISORDER
  2. ITRACONAZOLE. [Suspect]
     Active Substance: ITRACONAZOLE
     Indication: BRONCHOPULMONARY ASPERGILLOSIS ALLERGIC
     Dosage: UNK
     Dates: start: 20141015, end: 20141225
  3. AUGMENTIN [Concomitant]
     Active Substance: AMOXICILLIN\CLAVULANATE POTASSIUM
     Indication: PNEUMONIA
     Dosage: UNK
     Dates: start: 20140621, end: 201409
  4. VENTOLINE [Suspect]
     Active Substance: ALBUTEROL
     Indication: BRONCHITIS
     Dosage: UNK
     Dates: end: 20150105
  5. ITRACONAZOLE. [Suspect]
     Active Substance: ITRACONAZOLE
     Dosage: UNK
     Dates: start: 20141022
  6. SERETIDE [Suspect]
     Active Substance: FLUTICASONE FUROATE\SALMETEROL XINAFOATE
     Indication: BRONCHITIS
     Dosage: UNK
     Dates: end: 20150105
  7. PREDNISONE. [Suspect]
     Active Substance: PREDNISONE
     Indication: BRONCHOPULMONARY ASPERGILLOSIS ALLERGIC
     Dosage: UNK UNK, UNK
     Dates: start: 20141015, end: 20150105
  8. JOSACINE [Concomitant]
     Active Substance: JOSAMYCIN
     Indication: PNEUMONIA
     Dosage: UNK
     Dates: start: 201407
  9. ITRACONAZOLE. [Suspect]
     Active Substance: ITRACONAZOLE
     Dosage: UNK
     Dates: start: 20141120, end: 20141225
  10. SERETIDE [Suspect]
     Active Substance: FLUTICASONE FUROATE\SALMETEROL XINAFOATE
     Indication: BRONCHIAL DISORDER
  11. PULMOZYME [Suspect]
     Active Substance: DORNASE ALFA
     Indication: PRODUCT USED FOR UNKNOWN INDICATION
     Dosage: UNK
     Dates: start: 201410, end: 201411
  12. VENTOLINE [Suspect]
     Active Substance: ALBUTEROL
     Indication: PNEUMONIA
  13. SERETIDE [Suspect]
     Active Substance: FLUTICASONE FUROATE\SALMETEROL XINAFOATE
     Indication: PNEUMONIA
  14. LOVENOX [Suspect]
     Active Substance: ENOXAPARIN SODIUM
     Indication: PRODUCT USED FOR UNKNOWN INDICATION
     Dosage: UNK
     Dates: end: 20150105

REACTIONS (2)
  - Exposure during pregnancy [Unknown]
  - Foetal death [Unknown]

NARRATIVE: CASE EVENT DATE: 20150105
